FAERS Safety Report 7466241-4 (Version None)
Quarter: 2011Q2

REPORT INFORMATION
  Report Type: 
  Country: None (occurrence: None)
  Receive Date: 20110509
  Receipt Date: 20100706
  Transmission Date: 20111010
  Serious: No
  Sender: FDA-Public Use
  Company Number: US-ALEXION-A201000790

PATIENT
  Sex: Male

DRUGS (7)
  1. CYCLOSPORINE [Concomitant]
     Dosage: 50 MG, QD
     Route: 048
  2. FLOMAX [Concomitant]
     Indication: PH BODY FLUID
  3. SOLIRIS [Suspect]
     Indication: PAROXYSMAL NOCTURNAL HAEMOGLOBINURIA
     Dosage: 600 MG, QW
     Route: 042
     Dates: start: 20090825, end: 20090915
  4. ARANESP [Concomitant]
     Indication: BENIGN PROSTATIC HYPERPLASIA
     Dosage: 4 MG, QD
     Route: 048
  5. PRAVASTATIN [Concomitant]
     Dosage: 20 MG, QD
     Route: 048
  6. SOLIRIS [Suspect]
     Dosage: 900 MG, Q2W
     Route: 042
     Dates: start: 20090922
  7. FOLIC ACID [Concomitant]
     Dosage: 1 MG, QD
     Route: 048

REACTIONS (2)
  - SKIN INFECTION [None]
  - SKIN PAPILLOMA [None]
